FAERS Safety Report 10064651 (Version 1)
Quarter: 2014Q1

REPORT INFORMATION
  Report Type: Spontaneous
  Country: US (occurrence: None)
  Receive Date: 20140328
  Receipt Date: 20140328
  Transmission Date: 20141002
  Serious: No
  Sender: FDA-Public Use
  Company Number: 1000054126

PATIENT
  Sex: Female

DRUGS (5)
  1. LINZESS (LINACLOTIDE) (290 MICROGRAM, CAPSULES) [Suspect]
     Indication: IRRITABLE BOWEL SYNDROME
     Dosage: 1 IN 1 D
     Route: 048
     Dates: start: 201402, end: 201402
  2. PRISTIQ (DESVENLAFAXINE SUCCINATE) [Concomitant]
  3. ABILIFY (ARIPIRAZOLE) [Concomitant]
  4. LIPITOR (ATORVASTATIN CALCIUM) [Concomitant]
  5. SYNTHROID (LEVOTHYROXINE SODIUM) [Concomitant]

REACTIONS (2)
  - Diarrhoea [None]
  - Nausea [None]
